FAERS Safety Report 7643948-7 (Version None)
Quarter: 2011Q3

REPORT INFORMATION
  Report Type: 
  Country: None (occurrence: None)
  Receive Date: 20110729
  Receipt Date: 20110429
  Transmission Date: 20111222
  Serious: No
  Sender: FDA-Public Use
  Company Number: US-GLAXOSMITHKLINE-A0925099A

PATIENT
  Sex: Female

DRUGS (9)
  1. SOMA [Concomitant]
  2. TRIAMTERENE AND HYDROCHLOROTHIAZIDE [Suspect]
     Indication: FLUID RETENTION
     Dosage: 1CAP PER DAY
     Route: 048
     Dates: start: 20090101, end: 20090101
  3. CALAN [Concomitant]
  4. LIPITOR [Concomitant]
  5. VALIUM [Concomitant]
  6. TYLENOL-500 [Concomitant]
  7. TYLENOL W/ CODEINE NO. 4 [Concomitant]
  8. CYMBALTA [Concomitant]
  9. VASOTEC [Concomitant]

REACTIONS (4)
  - RASH [None]
  - PHARYNGEAL OEDEMA [None]
  - DYSPNOEA [None]
  - OEDEMA MOUTH [None]
